FAERS Safety Report 4292414-8 (Version None)
Quarter: 2004Q1

REPORT INFORMATION
  Report Type: 
  Country: None (occurrence: None)
  Receive Date: 20040126
  Receipt Date: 20031015
  Transmission Date: 20041129
  Serious: No
  Sender: FDA-Public Use
  Company Number: USA031050027

PATIENT
  Age: 50 Year
  Sex: Male

DRUGS (4)
  1. FORTEO [Suspect]
     Indication: OSTEOPOROSIS
     Dosage: 20 UG/DAY
     Dates: start: 20031007
  2. INSULIN [Concomitant]
  3. CALCIUM [Concomitant]
  4. VITAMIN CAP [Concomitant]

REACTIONS (1)
  - BLOOD GLUCOSE DECREASED [None]
